FAERS Safety Report 20358700 (Version 1)
Quarter: 2022Q1

REPORT INFORMATION
  Report Type: Spontaneous
  Country: JP (occurrence: JP)
  Receive Date: 20220120
  Receipt Date: 20220120
  Transmission Date: 20220423
  Serious: Yes (Other)
  Sender: FDA-Public Use
  Company Number: JP-ALLERGAN-2202553US

PATIENT
  Sex: Female
  Weight: 55.3 kg

DRUGS (1)
  1. RISEDRONATE SODIUM [Suspect]
     Active Substance: RISEDRONATE SODIUM
     Indication: Product used for unknown indication
     Dosage: 75 MG, Q MONTH

REACTIONS (2)
  - Fracture delayed union [Unknown]
  - Atypical femur fracture [Recovering/Resolving]
